FAERS Safety Report 9125393 (Version 1)
Quarter: 2013Q1

REPORT INFORMATION
  Report Type: Spontaneous
  Country: US (occurrence: US)
  Receive Date: 20130117
  Receipt Date: 20130117
  Transmission Date: 20140127
  Serious: No
  Sender: FDA-Public Use
  Company Number: US-BRISTOL-MYERS SQUIBB COMPANY-17088501

PATIENT
  Age: 51 Year
  Sex: Female

DRUGS (2)
  1. YERVOY [Suspect]
     Indication: METASTATIC MALIGNANT MELANOMA
     Dosage: 4 DOSES 17MAY11,07JUN11 28JUN11 AN 19JUL11
     Route: 042
     Dates: start: 201105
  2. LEXAPRO [Concomitant]

REACTIONS (2)
  - Hypoaesthesia [Recovered/Resolved]
  - Pain in extremity [Recovered/Resolved]
